FAERS Safety Report 7162040-1 (Version None)
Quarter: 2010Q4

REPORT INFORMATION
  Report Type: 
  Country: None (occurrence: None)
  Receive Date: 20101215
  Receipt Date: 20090723
  Transmission Date: 20110411
  Serious: Yes (Hospitalization)
  Sender: FDA-Public Use
  Company Number: GB-PFIZER INC-2009244515

PATIENT
  Age: 66 Year

DRUGS (3)
  1. PREGABALIN [Suspect]
     Indication: NEUROPATHY PERIPHERAL
     Dosage: 75 MG, 3X/DAY
     Route: 048
     Dates: start: 20090522, end: 20090622
  2. PREGABALIN [Suspect]
     Indication: NEURALGIA
  3. FINASTERIDE [Concomitant]
     Dosage: UNK

REACTIONS (5)
  - CONFUSIONAL STATE [None]
  - FATIGUE [None]
  - HALLUCINATION [None]
  - HEPATITIS [None]
  - HYPERHIDROSIS [None]
